FAERS Safety Report 16948947 (Version 1)
Quarter: 2019Q4

REPORT INFORMATION
  Report Type: Spontaneous
  Country: US (occurrence: US)
  Receive Date: 20191023
  Receipt Date: 20191023
  Transmission Date: 20200122
  Serious: No
  Sender: FDA-Public Use
  Company Number: US-PURDUE-USA-2019-0147312

PATIENT
  Sex: Female
  Weight: 90.7 kg

DRUGS (2)
  1. LIDODERM [Concomitant]
     Active Substance: LIDOCAINE
     Indication: BACK PAIN
     Dosage: 2-3 DF, UNK
     Route: 062
     Dates: start: 2008
  2. OXYCODONE HYDROCHLORIDE (SIMILAR TO NDA 22-272) [Suspect]
     Active Substance: OXYCODONE HYDROCHLORIDE
     Indication: CANCER PAIN
     Dosage: UNK, Q6- 8H
     Route: 048
     Dates: start: 2008

REACTIONS (6)
  - Hypoaesthesia [Unknown]
  - Unevaluable event [Unknown]
  - Pain [Unknown]
  - Paraesthesia [Unknown]
  - Dyspnoea [Unknown]
  - Malaise [Unknown]

NARRATIVE: CASE EVENT DATE: 2014
